FAERS Safety Report 4522733-9 (Version None)
Quarter: 2004Q4

REPORT INFORMATION
  Report Type: 
  Country: None (occurrence: None)
  Receive Date: 20041207
  Receipt Date: 20041201
  Transmission Date: 20050328
  Serious: Yes (Life-Threatening)
  Sender: FDA-Public Use
  Company Number: TCI2004A04454

PATIENT
  Age: 82 Year
  Sex: Female

DRUGS (3)
  1. ACTOS [Suspect]
     Indication: DIABETES MELLITUS
     Dosage: 15 MG (15 MG, 1D), PER ORAL; AROUND
     Route: 048
     Dates: start: 20031204, end: 20041116
  2. DIOVAN [Suspect]
     Dosage: PER ORAL
     Route: 048
  3. GLYBURIDE [Concomitant]

REACTIONS (1)
  - HYPERKALAEMIA [None]
